FAERS Safety Report 4478336-8 (Version None)
Quarter: 2004Q4

REPORT INFORMATION
  Report Type: 
  Country: None (occurrence: None)
  Receive Date: 20041019
  Receipt Date: 20041008
  Transmission Date: 20050328
  Serious: Yes (Other)
  Sender: FDA-Public Use
  Company Number: US-ABBOTT-04P-163-0277566-00

PATIENT
  Sex: Female

DRUGS (3)
  1. HUMIRA [Suspect]
     Indication: RHEUMATOID ARTHRITIS
     Route: 058
     Dates: start: 20040123
  2. METHOTREXATE [Concomitant]
     Indication: ARTHRITIS
  3. PREDNISONE TAB [Concomitant]
     Indication: ARTHRITIS

REACTIONS (1)
  - ANGIOPATHY [None]
